FAERS Safety Report 21146613 (Version 4)
Quarter: 2022Q4

REPORT INFORMATION
  Report Type: Spontaneous
  Country: US (occurrence: US)
  Receive Date: 20220729
  Receipt Date: 20221020
  Transmission Date: 20230112
  Serious: No
  Sender: FDA-Public Use
  Company Number: US-GLAXOSMITHKLINE-US2022AMR112028

PATIENT
  Sex: Female

DRUGS (2)
  1. ZEJULA [Suspect]
     Active Substance: NIRAPARIB
     Indication: Ovarian cancer
     Dosage: 300 MG, QD
     Dates: start: 20220630
  2. ZEJULA [Suspect]
     Active Substance: NIRAPARIB
     Indication: Malignant neoplasm of unknown primary site
     Dosage: UNK

REACTIONS (3)
  - Nausea [Recovering/Resolving]
  - Arthralgia [Recovering/Resolving]
  - Product colour issue [Unknown]
